FAERS Safety Report 9642878 (Version 1)
Quarter: 2013Q4

REPORT INFORMATION
  Report Type: Spontaneous
  Country: FR (occurrence: FR)
  Receive Date: 20131024
  Receipt Date: 20131024
  Transmission Date: 20140711
  Serious: Yes (Other)
  Sender: FDA-Public Use
  Company Number: FR-NOVOPROD-390349

PATIENT
  Age: 89 Year
  Sex: Male

DRUGS (9)
  1. NOVONORM [Suspect]
     Indication: TYPE 2 DIABETES MELLITUS
     Route: 048
     Dates: end: 20130328
  2. ZYLORIC [Suspect]
     Dosage: UNK
     Route: 065
     Dates: start: 2013, end: 20130328
  3. LERCAN [Suspect]
     Indication: HYPERTENSION
     Dosage: 20 MG, QD
     Route: 048
     Dates: start: 2013, end: 20130328
  4. STILNOX [Suspect]
     Route: 048
     Dates: end: 20130328
  5. PARIET [Concomitant]
  6. TARDYFERON [Concomitant]
  7. FUROSEMIDE [Concomitant]
  8. PLAVIX [Concomitant]
  9. DAFALGAN [Concomitant]

REACTIONS (2)
  - Toxic skin eruption [Recovering/Resolving]
  - Rash [Recovering/Resolving]
